FAERS Safety Report 9228019 (Version 1)
Quarter: 2013Q2

REPORT INFORMATION
  Report Type: Spontaneous
  Country: FR (occurrence: FR)
  Receive Date: 20130412
  Receipt Date: 20130412
  Transmission Date: 20140414
  Serious: Yes (Hospitalization)
  Sender: FDA-Public Use
  Company Number: FR-ROCHE-1206344

PATIENT
  Age: 74 Year
  Sex: Female

DRUGS (14)
  1. METALYSE [Suspect]
     Indication: ACUTE CORONARY SYNDROME
     Route: 042
     Dates: start: 20100124
  2. ASPEGIC [Suspect]
     Indication: PRODUCT USED FOR UNKNOWN INDICATION
     Route: 048
     Dates: start: 20100124
  3. PLAVIX [Suspect]
     Indication: PRODUCT USED FOR UNKNOWN INDICATION
     Route: 048
     Dates: start: 20100124
  4. HEPARINE SODIQUE [Suspect]
     Indication: PRODUCT USED FOR UNKNOWN INDICATION
     Route: 042
     Dates: start: 20100124
  5. LEVOTHYROX [Concomitant]
  6. SECTRAL [Concomitant]
  7. ACTONEL [Concomitant]
  8. RIVOTRIL [Concomitant]
  9. EPTAVIT [Concomitant]
  10. CORTANCYL [Concomitant]
  11. KARDEGIC [Concomitant]
  12. ZOCOR [Concomitant]
  13. OGASTORO [Concomitant]
  14. PROMESTRIENE [Concomitant]

REACTIONS (5)
  - Cerebral haematoma [Recovered/Resolved]
  - Hemiparesis [Recovered/Resolved]
  - Somnolence [Recovered/Resolved]
  - Meningitis bacterial [Recovered/Resolved]
  - Pancreatitis acute [Unknown]
